FAERS Safety Report 6318916-8 (Version None)
Quarter: 2009Q3

REPORT INFORMATION
  Report Type: 
  Country: None (occurrence: None)
  Receive Date: 20090821
  Receipt Date: 20080915
  Transmission Date: 20100115
  Serious: No
  Sender: FDA-Public Use
  Company Number: US-ABBOTT-08P-163-0476292-00

PATIENT
  Sex: Male
  Weight: 145.28 kg

DRUGS (9)
  1. NIASPAN [Suspect]
     Indication: BLOOD CHOLESTEROL INCREASED
     Dosage: AT NIGHT
     Route: 048
  2. NIASPAN [Suspect]
     Indication: HIGH DENSITY LIPOPROTEIN INCREASED
     Dosage: AT NIGHT
     Route: 048
     Dates: start: 20080902, end: 20080912
  3. LISINOPRIL [Concomitant]
     Indication: BLOOD PRESSURE
     Route: 048
  4. ASPIRIN [Concomitant]
     Indication: CARDIAC DISORDER
     Route: 048
  5. ATENOLOL [Concomitant]
     Indication: BLOOD PRESSURE
     Route: 048
  6. CLOPIDOGREL [Concomitant]
     Indication: CARDIAC DISORDER
     Route: 048
  7. CLOPIDOGREL [Concomitant]
     Indication: ATRIOVENTRICULAR BLOCK
  8. SIMVASTATIN [Concomitant]
     Indication: BLOOD CHOLESTEROL
     Route: 048
  9. FISH OIL [Concomitant]
     Indication: CARDIAC DISORDER
     Route: 048

REACTIONS (9)
  - CARDIAC FLUTTER [None]
  - FEELING HOT [None]
  - FLUSHING [None]
  - GAIT DISTURBANCE [None]
  - MIDDLE INSOMNIA [None]
  - MYALGIA [None]
  - PAIN [None]
  - PRURITUS [None]
  - SKIN BURNING SENSATION [None]
